FAERS Safety Report 24207039 (Version 1)
Quarter: 2024Q3

REPORT INFORMATION
  Report Type: Spontaneous
  Country: US (occurrence: US)
  Receive Date: 20240813
  Receipt Date: 20240813
  Transmission Date: 20241016
  Serious: No
  Sender: SANOFI AVENTIS
  Company Number: US-SA-SAC20240808000065

PATIENT
  Age: 35 Year
  Sex: Female
  Weight: 105.2 kg

DRUGS (4)
  1. DUPIXENT [Suspect]
     Active Substance: DUPILUMAB
     Indication: Eosinophilic oesophagitis
     Dosage: 300 MG, QW
     Route: 058
  2. IBUPROFEN [Concomitant]
     Active Substance: IBUPROFEN
  3. LEXAPRO [Concomitant]
     Active Substance: ESCITALOPRAM OXALATE
  4. AMLODIPINE BESYLATE [Concomitant]
     Active Substance: AMLODIPINE BESYLATE

REACTIONS (2)
  - Pyrexia [Recovered/Resolved]
  - Pharyngitis [Unknown]

NARRATIVE: CASE EVENT DATE: 20240701
